FAERS Safety Report 4385038-5 (Version None)
Quarter: 2004Q2

REPORT INFORMATION
  Report Type: 
  Country: None (occurrence: None)
  Receive Date: 20040625
  Receipt Date: 20040610
  Transmission Date: 20050107
  Serious: Yes (Other)
  Sender: FDA-Public Use
  Company Number: 12582466

PATIENT
  Age: 35 Year
  Sex: Male

DRUGS (3)
  1. ZIDOVUDINE [Suspect]
     Indication: HIV INFECTION
     Dates: start: 20040330
  2. DIDANOSINE [Suspect]
     Indication: HIV INFECTION
     Dates: start: 20040330
  3. NEVIRAPINE [Suspect]
     Indication: HIV INFECTION
     Dates: start: 20040330

REACTIONS (6)
  - GAMMA-GLUTAMYLTRANSFERASE INCREASED [None]
  - HYPERSENSITIVITY [None]
  - LIVER FUNCTION TEST ABNORMAL [None]
  - PAIN [None]
  - URTICARIA [None]
  - VOMITING [None]
